FAERS Safety Report 4726184-3 (Version None)
Quarter: 2005Q3

REPORT INFORMATION
  Report Type: 
  Country: None (occurrence: None)
  Receive Date: 20050725
  Receipt Date: 20050711
  Transmission Date: 20060218
  Serious: Yes (Hospitalization)
  Sender: FDA-Public Use
  Company Number: FABR-10828

PATIENT
  Age: 32 Year
  Sex: Male

DRUGS (11)
  1. FABRAZYME [Suspect]
     Indication: FABRY'S DISEASE
     Dosage: 50 MG Q2WKS IV
     Route: 042
     Dates: start: 20040708
  2. EPOETIN BETA [Concomitant]
  3. CARBAMAZEPINE [Concomitant]
  4. CALCITRIOL [Concomitant]
  5. SPHERICAL ABSORBENT COAL [Concomitant]
  6. PRECIPITATED CALCIUM CARBONATE [Concomitant]
  7. NAHCO3 [Concomitant]
  8. AMLODIPINE BESYLATE [Concomitant]
  9. MYCOPHENOLATE MOFETIL [Concomitant]
  10. TACROLIMUS HYDRATE [Concomitant]
  11. ASPIRIN [Concomitant]

REACTIONS (3)
  - HAEMODIALYSIS [None]
  - RENAL FAILURE [None]
  - RENAL TRANSPLANT [None]
